FAERS Safety Report 4442706-4 (Version None)
Quarter: 2004Q3

REPORT INFORMATION
  Report Type: 
  Country: None (occurrence: None)
  Receive Date: 20040903
  Receipt Date: 20040618
  Transmission Date: 20050211
  Serious: Yes (Other)
  Sender: FDA-Public Use
  Company Number: 2004UW12734

PATIENT
  Age: 82 Year
  Sex: Male
  Weight: 104.3273 kg

DRUGS (5)
  1. CRESTOR [Suspect]
     Indication: BLOOD CHOLESTEROL INCREASED
     Dosage: 10 MG PO
     Route: 048
  2. PROPANOL [Concomitant]
  3. FUROSEMIDE [Concomitant]
  4. PEPCID [Concomitant]
  5. ACETYLSALICYLIC ACID [Concomitant]

REACTIONS (3)
  - HALLUCINATION [None]
  - RASH [None]
  - TREMOR [None]
